FAERS Safety Report 6701895-9 (Version None)
Quarter: 2010Q2

REPORT INFORMATION
  Report Type: 
  Country: None (occurrence: None)
  Receive Date: 20100429
  Receipt Date: 20100419
  Transmission Date: 20101027
  Serious: Yes (Other)
  Sender: FDA-Public Use
  Company Number: US-PFIZER INC-2010028934

PATIENT
  Sex: Male
  Weight: 82 kg

DRUGS (2)
  1. CHANTIX [Suspect]
     Indication: SMOKING CESSATION THERAPY
     Dosage: 0.5 MG, 1X/DAY
     Dates: start: 20100218
  2. OXYCONTIN [Concomitant]
     Indication: PAIN MANAGEMENT
     Dosage: UNK

REACTIONS (6)
  - DECREASED APPETITE [None]
  - DRUG INEFFECTIVE [None]
  - MALAISE [None]
  - NAUSEA [None]
  - SKIN LACERATION [None]
  - VOMITING [None]
